FAERS Safety Report 5910704-7 (Version None)
Quarter: 2008Q4

REPORT INFORMATION
  Report Type: 
  Country: None (occurrence: None)
  Receive Date: 20081006
  Receipt Date: 20081006
  Transmission Date: 20090506
  Serious: Yes (Other)
  Sender: FDA-Public Use
  Company Number: None

PATIENT
  Age: 27 Year
  Sex: Female
  Weight: 79.3795 kg

DRUGS (1)
  1. ZYRTEC [Suspect]
     Indication: HYPERSENSITIVITY
     Dosage: 1 TABLET ONCE A DAY
     Dates: start: 20080919, end: 20081003

REACTIONS (4)
  - DEPRESSION [None]
  - DISTURBANCE IN ATTENTION [None]
  - LETHARGY [None]
  - SUICIDAL IDEATION [None]
